FAERS Safety Report 18248556 (Version 6)
Quarter: 2020Q4

REPORT INFORMATION
  Report Type: Spontaneous
  Country: JP (occurrence: JP)
  Receive Date: 20200909
  Receipt Date: 20201215
  Transmission Date: 20210113
  Serious: Yes (Hospitalization)
  Sender: FDA-Public Use
  Company Number: JP-JNJFOC-20200845933

PATIENT
  Age: 68 Year
  Sex: Male
  Weight: 60 kg

DRUGS (4)
  1. GONAX [Concomitant]
     Active Substance: DEGARELIX
     Indication: PROSTATE CANCER METASTATIC
     Dosage: DOSE UNKNOWN
     Route: 058
     Dates: start: 20200601, end: 20200730
  2. ERLEADA [Suspect]
     Active Substance: APALUTAMIDE
     Indication: PROSTATE CANCER METASTATIC
     Route: 048
     Dates: start: 20200618, end: 20200825
  3. AMITIZA [Suspect]
     Active Substance: LUBIPROSTONE
     Dosage: DOSE UNKNOWN
     Route: 048
     Dates: end: 20200825
  4. GONAX [Concomitant]
     Active Substance: DEGARELIX
     Indication: PROSTATE CANCER METASTATIC
     Dosage: DOSE UNKNOWN
     Route: 058
     Dates: start: 20200914

REACTIONS (1)
  - Acute generalised exanthematous pustulosis [Recovered/Resolved]

NARRATIVE: CASE EVENT DATE: 20200818
